FAERS Safety Report 13663118 (Version 2)
Quarter: 2017Q3

REPORT INFORMATION
  Report Type: Spontaneous
  Country: JP (occurrence: JP)
  Receive Date: 20170619
  Receipt Date: 20170816
  Transmission Date: 20171127
  Serious: Yes (Hospitalization)
  Sender: FDA-Public Use
  Company Number: JP-009507513-1706JPN001287J

PATIENT
  Age: 53 Year
  Sex: Male

DRUGS (5)
  1. GRAZYNA TABLETS 50MG [Suspect]
     Active Substance: GRAZOPREVIR
     Indication: HEPATITIS C RNA POSITIVE
     Dosage: 100 MG, QD
     Route: 048
     Dates: start: 20170407
  2. ERELSA TABLETS 50MG [Suspect]
     Active Substance: ELBASVIR
     Indication: HEPATITIS C RNA POSITIVE
     Dosage: 50 MG, QD
     Route: 048
     Dates: start: 20170407
  3. LASIX [Concomitant]
     Active Substance: FUROSEMIDE
     Indication: NEPHROTIC SYNDROME
     Dosage: 80 MG, QD
     Route: 048
     Dates: start: 201702
  4. FLUITRAN [Concomitant]
     Active Substance: TRICHLORMETHIAZIDE
     Indication: NEPHROTIC SYNDROME
     Dosage: 2 MG, UNK
     Route: 048
     Dates: start: 201702
  5. DIART [Concomitant]
     Active Substance: AZOSEMIDE
     Indication: NEPHROTIC SYNDROME
     Dosage: 60 MG, UNK
     Route: 048
     Dates: start: 201702

REACTIONS (1)
  - Hyponatraemia [Not Recovered/Not Resolved]

NARRATIVE: CASE EVENT DATE: 20170530
